FAERS Safety Report 10238441 (Version 1)
Quarter: 2014Q2

REPORT INFORMATION
  Report Type: Spontaneous
  Country: US (occurrence: None)
  Receive Date: 20140613
  Receipt Date: 20140613
  Transmission Date: 20141212
  Serious: Yes (Hospitalization)
  Sender: FDA-Public Use
  Company Number: None

PATIENT
  Age: 81 Year
  Sex: Male
  Weight: 99.1 kg

DRUGS (2)
  1. DABIGATRAN [Suspect]
     Route: 048
     Dates: start: 20130125, end: 20140411
  2. ASPIRIN [Suspect]
     Route: 048
     Dates: start: 20130125, end: 20140411

REACTIONS (1)
  - Haematuria [None]
